FAERS Safety Report 6706709-9 (Version None)
Quarter: 2010Q2

REPORT INFORMATION
  Report Type: 
  Country: None (occurrence: None)
  Receive Date: 20100503
  Receipt Date: 20100421
  Transmission Date: 20101027
  Serious: Yes (Other)
  Sender: FDA-Public Use
  Company Number: DE-ROCHE-700222

PATIENT
  Age: 60 Year
  Sex: Female

DRUGS (1)
  1. ROACTEMRA [Suspect]
     Indication: RHEUMATOID ARTHRITIS
     Route: 042
     Dates: start: 20100324

REACTIONS (10)
  - ASTHENIA [None]
  - BLOOD PRESSURE INCREASED [None]
  - CARDIOVASCULAR DISORDER [None]
  - DIZZINESS [None]
  - DYSPNOEA [None]
  - HYPERHIDROSIS [None]
  - MALAISE [None]
  - NAUSEA [None]
  - PALPITATIONS [None]
  - TREMOR [None]
